FAERS Safety Report 11409044 (Version 2)
Quarter: 2015Q3

REPORT INFORMATION
  Report Type: Report from Study
  Country: US (occurrence: US)
  Receive Date: 20150824
  Receipt Date: 20150909
  Transmission Date: 20151125
  Serious: No
  Sender: FDA-Public Use
  Company Number: US-AMGEN-USASL2015081444

PATIENT
  Age: 34 Year
  Sex: Male

DRUGS (1)
  1. ENBREL [Suspect]
     Active Substance: ETANERCEPT
     Indication: ANKYLOSING SPONDYLITIS
     Dosage: 50 MG, QWK (WEEKLY)
     Route: 065

REACTIONS (10)
  - Rash [Unknown]
  - Injection site discolouration [Unknown]
  - Blister rupture [Unknown]
  - Injection site bruising [Unknown]
  - Injection site pain [Not Recovered/Not Resolved]
  - Muscle mass [Unknown]
  - Sunburn [Unknown]
  - Injection site nodule [Unknown]
  - Blister [Unknown]
  - Injection site haemorrhage [Unknown]

NARRATIVE: CASE EVENT DATE: 201508
